FAERS Safety Report 11935165 (Version 2)
Quarter: 2016Q2

REPORT INFORMATION
  Report Type: Spontaneous
  Country: US (occurrence: US)
  Receive Date: 20160121
  Receipt Date: 20160418
  Transmission Date: 20160815
  Serious: No
  Sender: FDA-Public Use
  Company Number: US-OTSUKA-2015_013593

PATIENT
  Sex: Female

DRUGS (2)
  1. REXULTI [Suspect]
     Active Substance: BREXPIPRAZOLE
     Dosage: ONE FOURTH OF ORIGINAL DOSE, UNK
     Route: 065
     Dates: start: 201510
  2. REXULTI [Suspect]
     Active Substance: BREXPIPRAZOLE
     Indication: SCHIZOPHRENIA
     Dosage: UNK
     Route: 065
     Dates: start: 201510, end: 201510

REACTIONS (4)
  - Restlessness [Unknown]
  - Mania [Unknown]
  - Delusional disorder, unspecified type [Unknown]
  - Insomnia [Unknown]

NARRATIVE: CASE EVENT DATE: 201510
